FAERS Safety Report 5362468-6 (Version None)
Quarter: 2007Q2

REPORT INFORMATION
  Report Type: 
  Country: None (occurrence: None)
  Receive Date: 20070619
  Receipt Date: 20070611
  Transmission Date: 20071010
  Serious: Yes (Hospitalization)
  Sender: FDA-Public Use
  Company Number: FR-ASTRAZENECA-2007CG00885

PATIENT
  Age: 92 Year
  Sex: Female

DRUGS (8)
  1. SYMBICORT [Suspect]
     Route: 055
     Dates: end: 20070204
  2. OMEPRAZOLE [Suspect]
     Route: 048
     Dates: end: 20070204
  3. SINGULAIR [Suspect]
     Route: 048
     Dates: end: 20070204
  4. PENTASA [Concomitant]
     Route: 048
  5. SOTALOL HCL [Concomitant]
     Route: 048
  6. IKOREL [Concomitant]
     Route: 048
  7. DIFFU K [Concomitant]
  8. FUROSEMIDE [Concomitant]

REACTIONS (2)
  - HYPONATRAEMIA [None]
  - MALAISE [None]
